FAERS Safety Report 21070369 (Version 1)
Quarter: 2022Q3

REPORT INFORMATION
  Report Type: Spontaneous
  Country: DE (occurrence: None)
  Receive Date: 20220712
  Receipt Date: 20220712
  Transmission Date: 20221027
  Serious: Yes (Life-Threatening, Hospitalization)
  Sender: FDA-Public Use
  Company Number: 2022A247331

PATIENT
  Age: 70 Year
  Sex: Female
  Weight: 80 kg

DRUGS (1)
  1. LYNPARZA [Suspect]
     Active Substance: OLAPARIB
     Indication: Gallbladder cancer
     Dosage: 300 MG MILLGRAM(S) EVERY 2 DAYS 2 SEPARATED DOSES
     Route: 048
     Dates: start: 20211028

REACTIONS (2)
  - Eyelid oedema [Unknown]
  - Jugular vein thrombosis [Unknown]

NARRATIVE: CASE EVENT DATE: 20211029
